FAERS Safety Report 6980395-5 (Version None)
Quarter: 2010Q3

REPORT INFORMATION
  Report Type: 
  Country: None (occurrence: None)
  Receive Date: 20100914
  Receipt Date: 20100903
  Transmission Date: 20110219
  Serious: Yes (Hospitalization, Other)
  Sender: FDA-Public Use
  Company Number: GB-JNJFOC-20090301268

PATIENT
  Sex: Female
  Weight: 58 kg

DRUGS (18)
  1. REMICADE [Suspect]
     Indication: RHEUMATOID ARTHRITIS
     Route: 042
  2. REMICADE [Suspect]
     Route: 042
  3. METHOTREXATE [Concomitant]
  4. METHOTREXATE [Concomitant]
  5. PREDNISOLONE [Concomitant]
  6. ADCAL D3 [Concomitant]
  7. CO-DANTHRUSATE [Concomitant]
  8. DF 118 [Concomitant]
  9. DICLOFENAC [Concomitant]
  10. FOLIC ACID [Concomitant]
  11. HYDROXYCHLOROQUINE [Concomitant]
  12. HYOSCINE HBR HYT [Concomitant]
  13. LACTULOSE [Concomitant]
  14. ACETAMINOPHEN [Concomitant]
  15. RABEPRAZOLE SODIUM [Concomitant]
  16. RISEDRONATE SODIUM [Concomitant]
  17. HYDROXYETHYLCELLULOSE [Concomitant]
  18. LEFLUNOMIDE [Concomitant]

REACTIONS (6)
  - ARTHRALGIA [None]
  - BACTERAEMIA [None]
  - DEVICE DISLOCATION [None]
  - NEURALGIA [None]
  - NEUTROPENIC SEPSIS [None]
  - PNEUMONIA [None]
